FAERS Safety Report 17274634 (Version 1)
Quarter: 2020Q1

REPORT INFORMATION
  Report Type: Spontaneous
  Country: US (occurrence: US)
  Receive Date: 20200115
  Receipt Date: 20200115
  Transmission Date: 20200409
  Serious: Yes (Death)
  Sender: FDA-Public Use
  Company Number: US-ABBVIE-20P-163-3232162-00

PATIENT
  Age: 6 Month
  Sex: Male
  Weight: 6.3 kg

DRUGS (2)
  1. SYNAGIS [Suspect]
     Active Substance: PALIVIZUMAB
     Indication: PRODUCT USED FOR UNKNOWN INDICATION
     Dosage: 15MG/ML MONTHLY
     Route: 030
     Dates: start: 20191114, end: 20191114
  2. SYNAGIS [Suspect]
     Active Substance: PALIVIZUMAB
     Dosage: 15MG/ML MONTHLY PALIVIZUMAB: 10.0MG/ML
     Route: 030
     Dates: start: 20191217

REACTIONS (2)
  - Death [Fatal]
  - Inappropriate schedule of product administration [Unknown]

NARRATIVE: CASE EVENT DATE: 20191217
